FAERS Safety Report 16907245 (Version 1)
Quarter: 2019Q4

REPORT INFORMATION
  Report Type: Spontaneous
  Country: US (occurrence: US)
  Receive Date: 20190819
  Receipt Date: 20190819
  Transmission Date: 20200122
  Serious: No
  Sender: FDA-Public Use
  Company Number: None

PATIENT
  Age: 74 Year
  Sex: Male

DRUGS (1)
  1. TIVICAY [Suspect]
     Active Substance: DOLUTEGRAVIR SODIUM
     Route: 048
     Dates: start: 2018

REACTIONS (4)
  - Device malfunction [None]
  - Therapy cessation [None]
  - Surgery [None]
  - Medical device site scar [None]

NARRATIVE: CASE EVENT DATE: 20190819
